FAERS Safety Report 6271519-6 (Version None)
Quarter: 2009Q3

REPORT INFORMATION
  Report Type: 
  Country: None (occurrence: None)
  Receive Date: 20090717
  Receipt Date: 20090707
  Transmission Date: 20100115
  Serious: Yes (Other)
  Sender: FDA-Public Use
  Company Number: DE-NAPPMUNDI-DEU-2009-0005377

PATIENT
  Age: 27 Year
  Sex: Male

DRUGS (1)
  1. OXYGESIC 10 MG [Suspect]
     Indication: HEADACHE
     Dosage: 10 MG, BID
     Route: 048
     Dates: start: 20080401

REACTIONS (2)
  - CONSTIPATION [None]
  - GINGIVAL HYPERPLASIA [None]
